FAERS Safety Report 4955326-X (Version None)
Quarter: 2006Q1

REPORT INFORMATION
  Report Type: 
  Country: None (occurrence: None)
  Receive Date: 20060322
  Receipt Date: 20060313
  Transmission Date: 20060701
  Serious: Yes (Other)
  Sender: FDA-Public Use
  Company Number: 2006008594

PATIENT
  Sex: 0

DRUGS (2)
  1. VIRACEPT [Suspect]
     Indication: ASYMPTOMATIC HIV INFECTION
     Dosage: 2500 MG
  2. LAMIVUDINE + ZIDOVUDINE [Suspect]
     Indication: HIV TEST POSITIVE
     Dosage: ORAL
     Route: 048

REACTIONS (3)
  - DRUG EXPOSURE DURING PREGNANCY [None]
  - POLYDACTYLY [None]
  - PREGNANCY [None]
